FAERS Safety Report 5485594-X (Version None)
Quarter: 2007Q4

REPORT INFORMATION
  Report Type: 
  Country: None (occurrence: None)
  Receive Date: 20071011
  Receipt Date: 20070916
  Transmission Date: 20080405
  Serious: Yes (Hospitalization, Other)
  Sender: FDA-Public Use
  Company Number: 060011L07JPN

PATIENT
  Age: 30 Week
  Sex: Female

DRUGS (2)
  1. CLOMIPHENE CITRATE [Suspect]
     Indication: OVULATION INDUCTION
     Dates: start: 20051001
  2. MENOTROPINS [Suspect]
     Dates: start: 20051201

REACTIONS (5)
  - CAESAREAN SECTION [None]
  - DRUG EXPOSURE DURING PREGNANCY [None]
  - FOETAL GROWTH RETARDATION [None]
  - PREMATURE BABY [None]
  - TWIN PREGNANCY [None]
